FAERS Safety Report 23293743 (Version 1)
Quarter: 2023Q4

REPORT INFORMATION
  Report Type: Spontaneous
  Country: US (occurrence: None)
  Receive Date: 20231213
  Receipt Date: 20231213
  Transmission Date: 20240109
  Serious: Yes (Hospitalization)
  Sender: FDA-Public Use
  Company Number: None

PATIENT
  Age: 65 Year
  Sex: Female

DRUGS (5)
  1. CAPECITABINE [Suspect]
     Active Substance: CAPECITABINE
  2. KEPPRA [Concomitant]
     Active Substance: LEVETIRACETAM
  3. dailyvite d 3 [Concomitant]
  4. ALLEGRA [Concomitant]
     Active Substance: FEXOFENADINE HYDROCHLORIDE
  5. JANTOVEN [Suspect]
     Active Substance: WARFARIN SODIUM

REACTIONS (1)
  - Eyelid ptosis [None]

NARRATIVE: CASE EVENT DATE: 20231211
